FAERS Safety Report 5805511-X (Version None)
Quarter: 2008Q3

REPORT INFORMATION
  Report Type: 
  Country: None (occurrence: None)
  Receive Date: 20080710
  Receipt Date: 20080630
  Transmission Date: 20090109
  Serious: Yes (Hospitalization)
  Sender: FDA-Public Use
  Company Number: IT-NOVOPROD-275702

PATIENT
  Age: 65 Year
  Sex: Male

DRUGS (5)
  1. NOVONORM [Suspect]
     Indication: DIABETES MELLITUS
     Dosage: .75 MG, QD
     Dates: start: 20080420, end: 20080421
  2. NOVONORM [Suspect]
     Dosage: 1.5 MG, QD
     Dates: start: 20080421, end: 20080423
  3. EPARINA CALCICA [Concomitant]
     Dosage: 1 ML, QD
  4. CORDARONE [Concomitant]
     Dosage: 200 MG, QD
  5. NORVASC [Concomitant]
     Dosage: 10 MG, QD

REACTIONS (3)
  - DEHYDRATION [None]
  - DIARRHOEA [None]
  - RENAL FAILURE [None]
